FAERS Safety Report 4516616-8 (Version None)
Quarter: 2004Q4

REPORT INFORMATION
  Report Type: 
  Country: None (occurrence: None)
  Receive Date: 20041202
  Receipt Date: 20041122
  Transmission Date: 20050328
  Serious: Yes (Other)
  Sender: FDA-Public Use
  Company Number: US-JNJFOC-20041105763

PATIENT
  Sex: Female

DRUGS (1)
  1. DURAGESIC [Suspect]
     Indication: DRUG USE FOR UNKNOWN INDICATION
     Route: 062
     Dates: start: 20020101

REACTIONS (17)
  - AGGRESSION [None]
  - ANOREXIA [None]
  - ANXIETY [None]
  - BEDRIDDEN [None]
  - CEREBROVASCULAR ACCIDENT [None]
  - COLD SWEAT [None]
  - DEHYDRATION [None]
  - DEPRESSION [None]
  - DRUG WITHDRAWAL SYNDROME [None]
  - FEELING ABNORMAL [None]
  - HALLUCINATIONS, MIXED [None]
  - HOMICIDAL IDEATION [None]
  - MALAISE [None]
  - NERVOUSNESS [None]
  - SUICIDAL IDEATION [None]
  - TREMOR [None]
  - WEIGHT DECREASED [None]
